FAERS Safety Report 12964919 (Version 1)
Quarter: 2016Q4

REPORT INFORMATION
  Report Type: Spontaneous
  Country: US (occurrence: US)
  Receive Date: 20161122
  Receipt Date: 20161122
  Transmission Date: 20170207
  Serious: Yes (Other)
  Sender: FDA-Public Use
  Company Number: US-PFIZER INC-2016536395

PATIENT

DRUGS (3)
  1. MEROPENEM. [Suspect]
     Active Substance: MEROPENEM
     Dosage: UNK (INFUSION TIME OF MEROPENEM WAS INCREASED FROM ONE HOUR TO THREE HOURS)
  2. MEROPENEM. [Suspect]
     Active Substance: MEROPENEM
     Indication: PSEUDOMONAS INFECTION
     Dosage: 1 G, UNK (EVERY EIGHT HOUR)
  3. AZTREONAM. [Suspect]
     Active Substance: AZTREONAM
     Indication: PSEUDOMONAS INFECTION
     Dosage: 2 G, UNK (EVERY SIX HOUR FOR THREE DAYS)

REACTIONS (1)
  - Pathogen resistance [Unknown]
